FAERS Safety Report 6600410-8 (Version None)
Quarter: 2010Q1

REPORT INFORMATION
  Report Type: 
  Country: None (occurrence: None)
  Receive Date: 20100223
  Receipt Date: 20100223
  Transmission Date: 20100710
  Serious: Yes (Life-Threatening, Disabling)
  Sender: FDA-Public Use
  Company Number: None

PATIENT
  Sex: Female
  Weight: 72.5755 kg

DRUGS (2)
  1. BIAXIN [Suspect]
     Indication: HELICOBACTER INFECTION
     Dosage: 500 MG 2X ORAL
     Route: 048
     Dates: start: 20090717, end: 20090731
  2. BIAXIN [Suspect]

REACTIONS (4)
  - CONDITION AGGRAVATED [None]
  - EOSINOPHIL COUNT INCREASED [None]
  - RESPIRATORY DISTRESS [None]
  - SKIN LESION [None]
